FAERS Safety Report 9466937 (Version 3)
Quarter: 2013Q3

REPORT INFORMATION
  Report Type: Spontaneous
  Country: US (occurrence: US)
  Receive Date: 20130820
  Receipt Date: 20130916
  Transmission Date: 20140515
  Serious: Yes (Hospitalization, Other)
  Sender: FDA-Public Use
  Company Number: US-009507513-1102USA00026

PATIENT
  Sex: Male

DRUGS (10)
  1. FOSAMAX [Suspect]
     Indication: PROSTATE CANCER
     Dosage: 10 MG, QD
     Route: 048
     Dates: start: 20010429, end: 20020209
  2. FOSAMAX [Suspect]
     Indication: OSTEOPENIA
     Dosage: 70 MG, QW
     Route: 048
     Dates: start: 20020214, end: 20040311
  3. AREDIA [Concomitant]
     Indication: PROSTATE CANCER
     Dosage: 60 MG, UNK
     Dates: start: 20020522, end: 20030613
  4. AREDIA [Concomitant]
     Indication: OSTEOPENIA
  5. ZOMETA [Concomitant]
     Indication: PROSTATE CANCER
     Dosage: 4 MG, UNK
     Dates: start: 20030915, end: 20050328
  6. ZOMETA [Concomitant]
     Indication: OSTEOPENIA
  7. ACTONEL [Concomitant]
     Indication: PROSTATE CANCER
     Dosage: 35 MG, QW
     Dates: start: 20040318, end: 20051103
  8. ACTONEL [Concomitant]
     Indication: OSTEOPENIA
     Dosage: 35 MG, QW
     Dates: start: 20060707, end: 20060820
  9. CALCIUM CITRATE [Concomitant]
     Dosage: 1400 MG, UNK
  10. VITAMIN D (UNSPECIFIED) [Concomitant]
     Dosage: 600 IU, UNK

REACTIONS (33)
  - Nephrolithiasis [Unknown]
  - Appendicitis [Unknown]
  - Muscular weakness [Unknown]
  - Sequestrectomy [Unknown]
  - Walking disability [Unknown]
  - Prostate cancer [Unknown]
  - Arthralgia [Unknown]
  - Osteonecrosis of jaw [Not Recovered/Not Resolved]
  - Anxiety [Unknown]
  - Pulpitis dental [Unknown]
  - Dental caries [Unknown]
  - Periodontal disease [Unknown]
  - Blood cholesterol increased [Unknown]
  - Lymphadenectomy [Unknown]
  - Impaired healing [Not Recovered/Not Resolved]
  - Tooth discolouration [Unknown]
  - Radiotherapy [Unknown]
  - Bruxism [Unknown]
  - Loose tooth [Unknown]
  - Oropharyngeal plaque [Unknown]
  - Oropharyngeal plaque [Unknown]
  - Gingival inflammation [Unknown]
  - Osteoradionecrosis [Unknown]
  - Tooth loss [Unknown]
  - Tooth disorder [Unknown]
  - Gingival disorder [Unknown]
  - Tooth loss [Unknown]
  - Dental caries [Unknown]
  - Endodontic procedure [Unknown]
  - Tooth fracture [Unknown]
  - Dental caries [Unknown]
  - Endodontic procedure [Unknown]
  - Off label use [Unknown]
